FAERS Safety Report 16257409 (Version 1)
Quarter: 2019Q2

REPORT INFORMATION
  Report Type: Spontaneous
  Country: DE (occurrence: DE)
  Receive Date: 20190430
  Receipt Date: 20190430
  Transmission Date: 20190711
  Serious: Yes (Other)
  Sender: FDA-Public Use
  Company Number: DE-MYLANLABS-2019M1040755

PATIENT
  Age: 57 Year
  Sex: Male

DRUGS (3)
  1. ASPIRINE [Suspect]
     Active Substance: ASPIRIN
     Indication: PRODUCT USED FOR UNKNOWN INDICATION
     Dosage: 100 MG, DAILY
     Dates: start: 201203
  2. AZATHIOPRINE. [Suspect]
     Active Substance: AZATHIOPRINE
     Indication: PRODUCT USED FOR UNKNOWN INDICATION
     Dosage: 100 MG, DAILY
     Dates: start: 201203, end: 201209
  3. INFLIXIMAB [Suspect]
     Active Substance: INFLIXIMAB
     Indication: NEUROSARCOIDOSIS
     Dosage: 5 MG/KG BODY WEIGHT EVERY 4 WEEKS
     Dates: start: 201203

REACTIONS (2)
  - Ischaemic stroke [Recovered/Resolved]
  - IIIrd nerve paralysis [Unknown]

NARRATIVE: CASE EVENT DATE: 201209
